FAERS Safety Report 21352343 (Version 1)
Quarter: 2022Q3

REPORT INFORMATION
  Report Type: Spontaneous
  Country: US (occurrence: US)
  Receive Date: 20220920
  Receipt Date: 20220920
  Transmission Date: 20221027
  Serious: No
  Sender: FDA-Public Use
  Company Number: US-BION-010471

PATIENT

DRUGS (1)
  1. ZYRTEC [Suspect]
     Active Substance: CETIRIZINE HYDROCHLORIDE
     Indication: Rhinorrhoea

REACTIONS (3)
  - Incorrect dose administered [Not Recovered/Not Resolved]
  - Product prescribing error [Not Recovered/Not Resolved]
  - Drug ineffective [Not Recovered/Not Resolved]
